FAERS Safety Report 7108899-5 (Version None)
Quarter: 2010Q4

REPORT INFORMATION
  Report Type: 
  Country: None (occurrence: None)
  Receive Date: 20101117
  Receipt Date: 20100923
  Transmission Date: 20110411
  Serious: No
  Sender: FDA-Public Use
  Company Number: US-BAYER-201022245BCC

PATIENT
  Age: 81 Year
  Sex: Female
  Weight: 66 kg

DRUGS (7)
  1. ALEVE (CAPLET) [Suspect]
     Indication: OEDEMA PERIPHERAL
     Dosage: AS USED: 220/440 MG  UNIT DOSE: 220 MG
     Route: 048
     Dates: start: 20100921, end: 20100921
  2. ALEVE (CAPLET) [Suspect]
     Dosage: TOTAL DAILY DOSE: 220 MG  UNIT DOSE: 220 MG
     Route: 048
     Dates: start: 20100922
  3. VITAMIN E [Concomitant]
  4. ASCORBIC ACID [Concomitant]
  5. MULTI-VITAMIN CENTRUM SILVER [Concomitant]
  6. CALCIUM [Concomitant]
  7. CALTRATE [Concomitant]

REACTIONS (2)
  - ASTHENIA [None]
  - SLUGGISHNESS [None]
